FAERS Safety Report 4965525-9 (Version None)
Quarter: 2006Q1

REPORT INFORMATION
  Report Type: 
  Country: None (occurrence: None)
  Receive Date: 20060201
  Receipt Date: 20051207
  Transmission Date: 20060701
  Serious: No
  Sender: FDA-Public Use
  Company Number: 2005PV005562

PATIENT
  Age: 52 Year
  Sex: Female
  Weight: 111.5849 kg

DRUGS (6)
  1. BYETTA [Suspect]
     Indication: DIABETES MELLITUS NON-INSULIN-DEPENDENT
     Dosage: 5 MCG;BID;SC
     Dates: start: 20051111
  2. GLUCOPHAGE [Concomitant]
  3. ACTOS [Concomitant]
  4. CORTEF [Concomitant]
  5. ACTOS [Concomitant]
  6. ALLERGY MEDICATION [Concomitant]

REACTIONS (7)
  - ABDOMINAL PAIN UPPER [None]
  - BLOOD GLUCOSE INCREASED [None]
  - INJECTION SITE ERYTHEMA [None]
  - INJECTION SITE MASS [None]
  - INJECTION SITE PAIN [None]
  - INJECTION SITE PRURITUS [None]
  - NAUSEA [None]
